FAERS Safety Report 13203377 (Version 2)
Quarter: 2019Q2

REPORT INFORMATION
  Report Type: Spontaneous
  Country: US (occurrence: US)
  Receive Date: 20170209
  Receipt Date: 20190510
  Transmission Date: 20190711
  Serious: No
  Sender: FDA-Public Use
  Company Number: US-ASTRAZENECA-2017SE13499

PATIENT
  Age: 23919 Day
  Sex: Male
  Weight: 63.5 kg

DRUGS (5)
  1. BRILINTA [Suspect]
     Active Substance: TICAGRELOR
     Indication: STENT PLACEMENT
     Route: 048
     Dates: start: 201605, end: 201705
  2. LISINOPRIL. [Suspect]
     Active Substance: LISINOPRIL
     Indication: BLOOD PRESSURE MEASUREMENT
     Route: 048
  3. ASPIRIN. [Concomitant]
     Active Substance: ASPIRIN
     Route: 048
     Dates: start: 201606
  4. METOPROLOL. [Suspect]
     Active Substance: METOPROLOL
     Indication: BLOOD PRESSURE MEASUREMENT
     Route: 048
     Dates: start: 201605
  5. BRILINTA [Suspect]
     Active Substance: TICAGRELOR
     Indication: STENT PLACEMENT
     Route: 048
     Dates: start: 201705

REACTIONS (9)
  - Dry skin [Recovered/Resolved]
  - Contusion [Unknown]
  - Respiration abnormal [Not Recovered/Not Resolved]
  - Arterial disorder [Recovered/Resolved]
  - Epistaxis [Recovered/Resolved]
  - Coagulation time prolonged [Unknown]
  - Haemorrhage [Recovered/Resolved]
  - Skin haemorrhage [Recovered/Resolved]
  - Gingival bleeding [Not Recovered/Not Resolved]

NARRATIVE: CASE EVENT DATE: 2016
